FAERS Safety Report 5142906-4 (Version None)
Quarter: 2006Q4

REPORT INFORMATION
  Report Type: 
  Country: None (occurrence: None)
  Receive Date: 20061030
  Receipt Date: 20061018
  Transmission Date: 20070319
  Serious: Yes (Hospitalization)
  Sender: FDA-Public Use
  Company Number: FR200610003437

PATIENT
  Age: 78 Year
  Sex: Female

DRUGS (6)
  1. FORTEO [Suspect]
     Indication: OSTEOPOROSIS
     Dosage: 20 UG, DAILY (1/D), SUBCUTANEOUS
     Route: 058
     Dates: start: 20050513
  2. FORTEO [Concomitant]
  3. TENORMIN [Concomitant]
  4. TRAMADOL HCL [Concomitant]
  5. LORAZEPAM [Concomitant]
  6. ASPIRIN [Concomitant]

REACTIONS (1)
  - CARDIAC ARREST [None]
